FAERS Safety Report 10280225 (Version 2)
Quarter: 2014Q3

REPORT INFORMATION
  Report Type: Report from Study
  Country: US (occurrence: US)
  Receive Date: 20140707
  Receipt Date: 20140714
  Transmission Date: 20150326
  Serious: Yes (Hospitalization, Other)
  Sender: FDA-Public Use
  Company Number: US-ASTELLAS-2014US007816

PATIENT
  Age: 63 Year
  Sex: Female

DRUGS (1)
  1. ERLOTINIB [Suspect]
     Active Substance: ERLOTINIB
     Indication: LUNG NEOPLASM MALIGNANT
     Route: 048
     Dates: start: 201403

REACTIONS (16)
  - Palpitations [Not Recovered/Not Resolved]
  - Dyspnoea [Unknown]
  - Aphonia [Not Recovered/Not Resolved]
  - Throat irritation [Unknown]
  - Decreased appetite [Unknown]
  - Dysphagia [Unknown]
  - Dyspnoea [Recovering/Resolving]
  - Depression [Not Recovered/Not Resolved]
  - Pain [Not Recovered/Not Resolved]
  - Oropharyngeal pain [Not Recovered/Not Resolved]
  - Gastrooesophageal reflux disease [Unknown]
  - Nasopharyngitis [Not Recovered/Not Resolved]
  - Hypertension [Not Recovered/Not Resolved]
  - Visual impairment [Not Recovered/Not Resolved]
  - Electrocardiogram abnormal [Unknown]
  - Glaucoma [Unknown]

NARRATIVE: CASE EVENT DATE: 20140507
